FAERS Safety Report 4953626-0 (Version None)
Quarter: 2006Q1

REPORT INFORMATION
  Report Type: 
  Country: None (occurrence: None)
  Receive Date: 20060324
  Receipt Date: 20051205
  Transmission Date: 20060701
  Serious: Yes (Hospitalization)
  Sender: FDA-Public Use
  Company Number: US-MERCK-0512USA00656

PATIENT
  Age: 88 Year
  Sex: Male
  Weight: 68 kg

DRUGS (15)
  1. VIOXX [Suspect]
     Indication: ARTHROPATHY
     Route: 048
     Dates: start: 20031112, end: 20031121
  2. IMDUR [Concomitant]
     Route: 065
  3. ZESTRIL [Concomitant]
     Route: 065
  4. LASIX [Concomitant]
     Route: 065
  5. NIASPAN [Concomitant]
     Route: 065
  6. HYTRIN [Concomitant]
     Route: 065
  7. TOPROL-XL [Concomitant]
     Route: 065
  8. XOPENEX [Concomitant]
     Route: 065
  9. PULMICORT [Concomitant]
     Route: 065
  10. SYNTHROID [Concomitant]
     Route: 065
  11. ZETIA [Concomitant]
     Route: 065
  12. CARDIZEM [Concomitant]
     Route: 065
  13. COUMADIN [Suspect]
     Route: 065
  14. LOPRESSOR [Concomitant]
     Route: 065
  15. INDERAL [Concomitant]
     Route: 065

REACTIONS (7)
  - ARTERIOSCLEROSIS [None]
  - CARDIAC DISORDER [None]
  - CORONARY ARTERY DISEASE [None]
  - HEART INJURY [None]
  - INJURY [None]
  - MYOCARDIAL INFARCTION [None]
  - THERAPY REGIMEN CHANGED [None]
